FAERS Safety Report 7068088-X (Version None)
Quarter: 2010Q4

REPORT INFORMATION
  Report Type: 
  Country: None (occurrence: None)
  Receive Date: 20101028
  Receipt Date: 20101015
  Transmission Date: 20110411
  Serious: Yes (Other)
  Sender: FDA-Public Use
  Company Number: PHHY2010CA69414

PATIENT
  Sex: Female
  Weight: 53.515 kg

DRUGS (2)
  1. SANDOSTATIN LAR [Suspect]
     Indication: ACROMEGALY
     Dosage: UNK
     Route: 030
     Dates: start: 20061002
  2. SANDOSTATIN LAR [Suspect]
     Dosage: 20 MG, QMO
     Route: 030
     Dates: start: 20090101

REACTIONS (6)
  - FREQUENT BOWEL MOVEMENTS [None]
  - FURUNCLE [None]
  - INSOMNIA [None]
  - MALAISE [None]
  - RASH [None]
  - WEIGHT DECREASED [None]
